FAERS Safety Report 9148049 (Version 1)
Quarter: 2013Q1

REPORT INFORMATION
  Report Type: Spontaneous
  Country: BR (occurrence: BR)
  Receive Date: 20130308
  Receipt Date: 20130308
  Transmission Date: 20140127
  Serious: Yes (Other)
  Sender: FDA-Public Use
  Company Number: BR-ACCORD-016621

PATIENT
  Age: 54 Year
  Sex: Female
  Weight: 74.4 kg

DRUGS (7)
  1. PACLITAXEL [Suspect]
     Indication: OVARIAN CANCER
     Route: 042
  2. ALPRAZOLAM [Concomitant]
  3. RANITIDINE [Concomitant]
     Route: 042
     Dates: start: 20130115, end: 20130115
  4. DEXAMETHASONE [Concomitant]
     Route: 042
     Dates: start: 20130115, end: 20130115
  5. HYDROCORTISONE [Concomitant]
     Route: 042
     Dates: start: 20130115, end: 20130115
  6. CARBOPLATIN [Concomitant]
     Indication: OVARIAN CANCER
     Dates: start: 20121119
  7. NAUSEDRON [Concomitant]
     Route: 042
     Dates: start: 20130115, end: 20130115

REACTIONS (4)
  - Hypersensitivity [Unknown]
  - Hypertension [Recovered/Resolved]
  - Erythema [Recovered/Resolved]
  - Cough [Recovered/Resolved]
